FAERS Safety Report 5574108-1 (Version None)
Quarter: 2007Q4

REPORT INFORMATION
  Report Type: 
  Country: None (occurrence: None)
  Receive Date: 20071221
  Receipt Date: 20071204
  Transmission Date: 20080405
  Serious: Yes (Other)
  Sender: FDA-Public Use
  Company Number: 64979

PATIENT
  Age: 55 Year
  Sex: Female
  Weight: 54 kg

DRUGS (3)
  1. RANITIDINE [Suspect]
     Dosage: 50MG/ X1/ IV
     Route: 042
     Dates: start: 20071115, end: 20071115
  2. CHLORPHENIRAMINE MALEATE [Suspect]
     Dosage: 10MG/ X1/ IV
     Route: 042
     Dates: start: 20071115, end: 20071115
  3. CHEMOTHERAPY [Concomitant]

REACTIONS (3)
  - BRADYCARDIA [None]
  - DIZZINESS [None]
  - HYPOTENSION [None]
